FAERS Safety Report 7473431-3 (Version None)
Quarter: 2011Q2

REPORT INFORMATION
  Report Type: 
  Country: None (occurrence: None)
  Receive Date: 20110511
  Receipt Date: 20110504
  Transmission Date: 20111010
  Serious: Yes (Other)
  Sender: FDA-Public Use
  Company Number: DE-PFIZER INC-2011067923

PATIENT
  Age: 33 Year
  Sex: Female
  Weight: 50 kg

DRUGS (17)
  1. ZYVOX [Suspect]
     Indication: SEPSIS
  2. ACTRAPID [Concomitant]
     Dosage: 1 IU, UNK
  3. AMINOVEN [Concomitant]
     Dosage: 1 DF, 1X/DAY
     Route: 042
  4. CERNEVIT-12 [Concomitant]
     Dosage: 1 DF, 1X/DAY
     Route: 042
  5. HEPARIN [Concomitant]
     Dosage: 10000 IU, UNK
  6. PROPOFOL [Concomitant]
     Dosage: 14 ML, PER HOUR
  7. NORADRENALINE [Concomitant]
     Dosage: 5 MG, UNK
  8. ACETYLCYSTEINE [Concomitant]
     Dosage: 300 MG, 3X/DAY
     Route: 042
  9. NEXIUM [Concomitant]
     Dosage: 40 MG, 1X/DAY
     Route: 042
  10. SELENASE [Concomitant]
     Dosage: 200 UG, 1X/DAY
  11. ULTIVA [Concomitant]
     Dosage: 5 MG, UNK
  12. MUCOSOLVAN [Concomitant]
     Dosage: 5 MG, 3X/DAY
     Route: 042
  13. HYDROCORTISONE [Concomitant]
     Dosage: 200 MG, UNK
  14. METOCLOPRAMIDE [Concomitant]
     Dosage: 10 MG, 3X/DAY
  15. ROCEPHIN [Concomitant]
     Dosage: 4 MG, 1X/DAY
     Route: 042
  16. LIPOVENOES [Concomitant]
     Dosage: 21 ML/H
  17. ZYVOX [Suspect]
     Indication: PNEUMONIA
     Dosage: 600 MG, 2X/DAY
     Dates: start: 20101201, end: 20110101

REACTIONS (2)
  - TINNITUS [None]
  - DEAFNESS UNILATERAL [None]
